FAERS Safety Report 24390014 (Version 1)
Quarter: 2024Q4

REPORT INFORMATION
  Report Type: Spontaneous
  Country: US (occurrence: US)
  Receive Date: 20241003
  Receipt Date: 20241003
  Transmission Date: 20250114
  Serious: No
  Sender: BEIGENE
  Company Number: US-BEIGENE-BGN-2024-014947

PATIENT

DRUGS (1)
  1. BRUKINSA [Suspect]
     Active Substance: ZANUBRUTINIB
     Indication: Product used for unknown indication
     Dosage: 80 MILLIGRAM

REACTIONS (1)
  - Oedema peripheral [Unknown]
